FAERS Safety Report 16446683 (Version 5)
Quarter: 2019Q4

REPORT INFORMATION
  Report Type: Report from Study
  Country: GB (occurrence: GB)
  Receive Date: 20190618
  Receipt Date: 20191105
  Transmission Date: 20200122
  Serious: Yes (Other)
  Sender: FDA-Public Use
  Company Number: PHHY2019GB112176

PATIENT
  Age: 76 Year
  Sex: Female

DRUGS (3)
  1. SANDOSTATIN LAR DEPOT [Suspect]
     Active Substance: OCTREOTIDE ACETATE
     Indication: NEUROENDOCRINE TUMOUR
     Dosage: 30 MG, QMO
     Route: 030
  2. SANDOSTATIN LAR DEPOT [Suspect]
     Active Substance: OCTREOTIDE ACETATE
     Dosage: 30 MG, QMO, DRY POWDER
     Route: 030
     Dates: start: 201903
  3. SANDOSTATIN LAR DEPOT [Suspect]
     Active Substance: OCTREOTIDE ACETATE
     Dosage: 30 MG, QMO
     Route: 030
     Dates: start: 20190513

REACTIONS (14)
  - Abdominal pain lower [Unknown]
  - Erythema [Unknown]
  - Back pain [Unknown]
  - Nasopharyngitis [Unknown]
  - Night sweats [Unknown]
  - Angina pectoris [Unknown]
  - Abdominal pain upper [Unknown]
  - Diarrhoea [Unknown]
  - Injection site pain [Unknown]
  - Feeling hot [Unknown]
  - Hot flush [Unknown]
  - Constipation [Unknown]
  - Abdominal discomfort [Unknown]
  - Flushing [Unknown]

NARRATIVE: CASE EVENT DATE: 20190423
